FAERS Safety Report 5962857-2 (Version None)
Quarter: 2008Q4

REPORT INFORMATION
  Report Type: 
  Country: None (occurrence: None)
  Receive Date: 20081124
  Receipt Date: 20081024
  Transmission Date: 20090506
  Serious: No
  Sender: FDA-Public Use
  Company Number: US-BAYER-200836704NA

PATIENT
  Age: 26 Year
  Sex: Female

DRUGS (1)
  1. AVELOX [Suspect]
     Indication: EAR PAIN
     Dosage: TOTAL DAILY DOSE: 400 MG  UNIT DOSE: 400 MG
     Dates: start: 20081016

REACTIONS (5)
  - FATIGUE [None]
  - HEADACHE [None]
  - OEDEMA MOUTH [None]
  - ORAL PAIN [None]
  - OROPHARYNGEAL BLISTERING [None]
